FAERS Safety Report 19792583 (Version 1)
Quarter: 2021Q3

REPORT INFORMATION
  Report Type: Report from Study
  Country: None (occurrence: US)
  Receive Date: 20210906
  Receipt Date: 20210906
  Transmission Date: 20211014
  Serious: Yes (Hospitalization, Other)
  Sender: FDA-Public Use
  Company Number: US-ABBVIE-21K-163-4011819-00

PATIENT
  Age: 76 Year
  Sex: Female
  Weight: 97.16 kg

DRUGS (7)
  1. PLAQUENIL [Concomitant]
     Active Substance: HYDROXYCHLOROQUINE SULFATE
     Indication: PRODUCT USED FOR UNKNOWN INDICATION
  2. GABAPENTIN. [Concomitant]
     Active Substance: GABAPENTIN
     Indication: PRODUCT USED FOR UNKNOWN INDICATION
  3. HUMIRA [Suspect]
     Active Substance: ADALIMUMAB
     Route: 059
     Dates: start: 2009, end: 201203
  4. MODERNA COVID?19 VACCINE [Concomitant]
     Active Substance: CX-024414
     Indication: COVID-19 IMMUNISATION
     Dosage: 1ST DOSE, MODERNA
     Route: 030
     Dates: start: 20210226, end: 20210226
  5. HUMIRA [Suspect]
     Active Substance: ADALIMUMAB
     Route: 058
     Dates: start: 201204
  6. HUMIRA [Suspect]
     Active Substance: ADALIMUMAB
     Indication: RHEUMATOID ARTHRITIS
     Route: 058
     Dates: end: 2009
  7. MODERNA COVID?19 VACCINE [Concomitant]
     Active Substance: CX-024414
     Dosage: 2ND DOSE, MODERNA
     Route: 030
     Dates: start: 20210326, end: 20210326

REACTIONS (9)
  - Thrombosis [Recovered/Resolved]
  - Pulmonary embolism [Recovered/Resolved]
  - Retroperitoneal haemorrhage [Recovered/Resolved]
  - Pneumonia [Recovered/Resolved]
  - Joint swelling [Recovered/Resolved]
  - Cartilage atrophy [Recovered/Resolved]
  - Haemorrhage [Not Recovered/Not Resolved]
  - Arthralgia [Not Recovered/Not Resolved]
  - Pulmonary embolism [Recovered/Resolved]

NARRATIVE: CASE EVENT DATE: 200804
